FAERS Safety Report 17622566 (Version 1)
Quarter: 2020Q2

REPORT INFORMATION
  Report Type: Spontaneous
  Country: FR (occurrence: FR)
  Receive Date: 20200403
  Receipt Date: 20200403
  Transmission Date: 20200713
  Serious: Yes (Hospitalization, Other)
  Sender: FDA-Public Use
  Company Number: FR-SA-2020SA077524

PATIENT
  Age: 30 Year
  Sex: Male

DRUGS (1)
  1. CLOMIFENE CITRATE [Suspect]
     Active Substance: CLOMIPHENE
     Indication: PERFORMANCE ENHANCING PRODUCT USE
     Dosage: DAY BEFORE, HE HAD TAKEN 2 PILLS OF 50 MG OF AND ONE THE DAY OF THE EVENT

REACTIONS (5)
  - Acute myocardial infarction [Unknown]
  - Product use issue [Unknown]
  - Cardiac arrest [Recovered/Resolved]
  - Drug abuse [Unknown]
  - Cardiac ventricular thrombosis [Unknown]
